FAERS Safety Report 19909403 (Version 3)
Quarter: 2022Q1

REPORT INFORMATION
  Report Type: Report from Study
  Country: DE (occurrence: DE)
  Receive Date: 20211002
  Receipt Date: 20220207
  Transmission Date: 20220424
  Serious: Yes (Hospitalization, Other)
  Sender: FDA-Public Use
  Company Number: DE-TAKEDA-DE201906932

PATIENT
  Age: 67 Year
  Sex: Male
  Weight: 78 kg

DRUGS (44)
  1. ANTIHEMOPHILIC FACTOR, PEGYLATED (MW 20000) HUMAN SEQUENCE RECOMBINANT [Suspect]
     Active Substance: ANTIHEMOPHILIC FACTOR, PEGYLATED (MW 20000) HUMAN SEQUENCE RECOMBINANT
     Indication: Factor VIII deficiency
     Dosage: 3000 INTERNATIONAL UNIT, 2/WEEK
     Route: 065
     Dates: start: 20180503, end: 20190225
  2. ANTIHEMOPHILIC FACTOR, PEGYLATED (MW 20000) HUMAN SEQUENCE RECOMBINANT [Suspect]
     Active Substance: ANTIHEMOPHILIC FACTOR, PEGYLATED (MW 20000) HUMAN SEQUENCE RECOMBINANT
     Indication: Factor VIII deficiency
     Dosage: 3000 INTERNATIONAL UNIT, 2/WEEK
     Route: 065
     Dates: start: 20180503, end: 20190225
  3. ANTIHEMOPHILIC FACTOR, PEGYLATED (MW 20000) HUMAN SEQUENCE RECOMBINANT [Suspect]
     Active Substance: ANTIHEMOPHILIC FACTOR, PEGYLATED (MW 20000) HUMAN SEQUENCE RECOMBINANT
     Indication: Factor VIII deficiency
     Dosage: 3000 INTERNATIONAL UNIT, 2/WEEK
     Route: 065
     Dates: start: 20180503, end: 20190225
  4. ANTIHEMOPHILIC FACTOR, PEGYLATED (MW 20000) HUMAN SEQUENCE RECOMBINANT [Suspect]
     Active Substance: ANTIHEMOPHILIC FACTOR, PEGYLATED (MW 20000) HUMAN SEQUENCE RECOMBINANT
     Indication: Prophylaxis
     Dosage: 3000 INTERNATIONAL UNIT, 2/WEEK
     Route: 042
     Dates: start: 20180531, end: 20190219
  5. ANTIHEMOPHILIC FACTOR, PEGYLATED (MW 20000) HUMAN SEQUENCE RECOMBINANT [Suspect]
     Active Substance: ANTIHEMOPHILIC FACTOR, PEGYLATED (MW 20000) HUMAN SEQUENCE RECOMBINANT
     Indication: Prophylaxis
     Dosage: 3000 INTERNATIONAL UNIT, 2/WEEK
     Route: 042
     Dates: start: 20180531, end: 20190219
  6. ANTIHEMOPHILIC FACTOR, PEGYLATED (MW 20000) HUMAN SEQUENCE RECOMBINANT [Suspect]
     Active Substance: ANTIHEMOPHILIC FACTOR, PEGYLATED (MW 20000) HUMAN SEQUENCE RECOMBINANT
     Indication: Prophylaxis
     Dosage: 3000 INTERNATIONAL UNIT, 2/WEEK
     Route: 042
     Dates: start: 20180531, end: 20190219
  7. ADVATE [Suspect]
     Active Substance: ANTIHEMOPHILIC FACTOR, HUMAN RECOMBINANT
     Indication: Factor VIII deficiency
     Dosage: 3000 INTERNATIONAL UNIT, 2X A WEEK
     Route: 042
     Dates: start: 20180531
  8. ADVATE [Suspect]
     Active Substance: ANTIHEMOPHILIC FACTOR, HUMAN RECOMBINANT
     Indication: Factor VIII deficiency
     Dosage: 3000 INTERNATIONAL UNIT, 2X A WEEK
     Route: 042
     Dates: start: 20180531
  9. ADVATE [Suspect]
     Active Substance: ANTIHEMOPHILIC FACTOR, HUMAN RECOMBINANT
     Indication: Factor VIII deficiency
     Dosage: 3000 INTERNATIONAL UNIT, 2X A WEEK
     Route: 042
     Dates: start: 20180531
  10. ADVATE [Suspect]
     Active Substance: ANTIHEMOPHILIC FACTOR, HUMAN RECOMBINANT
     Indication: Prophylaxis
  11. ADVATE [Suspect]
     Active Substance: ANTIHEMOPHILIC FACTOR, HUMAN RECOMBINANT
     Indication: Prophylaxis
  12. ADVATE [Suspect]
     Active Substance: ANTIHEMOPHILIC FACTOR, HUMAN RECOMBINANT
     Indication: Prophylaxis
  13. CALCIUM CARBONATE [Concomitant]
     Active Substance: CALCIUM CARBONATE
     Indication: Osteoporosis
     Route: 065
  14. CLOPIDOGREL [Concomitant]
     Active Substance: CLOPIDOGREL BISULFATE
     Indication: Coronary artery disease
     Dosage: 75 MILLIGRAM, QD
     Route: 048
  15. BISOPROLOL FUMARATE [Concomitant]
     Active Substance: BISOPROLOL FUMARATE
     Indication: Coronary artery disease
     Dosage: 3 MILLIGRAM, QD
     Route: 048
  16. BISOPROLOL FUMARATE [Concomitant]
     Active Substance: BISOPROLOL FUMARATE
     Dosage: 2.5 MILLIGRAM, QD
     Route: 048
  17. RAMIPRIL [Concomitant]
     Active Substance: RAMIPRIL
     Indication: Coronary artery disease
     Dosage: 5 MILLIGRAM, QD
     Route: 048
  18. RAMIPRIL [Concomitant]
     Active Substance: RAMIPRIL
     Indication: Hypertension
     Dosage: 5 MILLIGRAM, QD
     Route: 048
     Dates: start: 20190227, end: 20190228
  19. SIMVASTATIN [Concomitant]
     Active Substance: SIMVASTATIN
     Indication: Coronary artery disease
     Dosage: 40 MILLIGRAM, QD
     Route: 048
  20. SIMVASTATIN [Concomitant]
     Active Substance: SIMVASTATIN
     Indication: Blood cholesterol increased
     Dosage: 20 MILLIGRAM, QD
     Route: 048
     Dates: start: 20210227, end: 20210228
  21. SIMVASTATIN [Concomitant]
     Active Substance: SIMVASTATIN
     Dosage: 20 MILLIGRAM, QD
     Route: 048
     Dates: start: 20190227, end: 20190228
  22. LEVOTHYROXINE SODIUM [Concomitant]
     Active Substance: LEVOTHYROXINE SODIUM
     Indication: Thyroid hormones decreased
     Dosage: 100 MILLIGRAM, QD
     Route: 048
  23. IBUPROFEN [Concomitant]
     Active Substance: IBUPROFEN
     Indication: Haemophilic arthropathy
     Dosage: 200 MILLIGRAM, QD
     Route: 048
  24. MAGNESIUM [Concomitant]
     Active Substance: MAGNESIUM
     Indication: Osteoporosis
     Dosage: 375 MILLIGRAM, QD
     Route: 048
  25. CALCIUM [Concomitant]
     Active Substance: CALCIUM
     Indication: Osteoporosis
     Dosage: 1 DOSAGE FORM, QD
     Route: 048
  26. ENOXAPARIN SODIUM [Concomitant]
     Active Substance: ENOXAPARIN SODIUM
     Indication: Femoral neck fracture
     Dosage: 50 MILLIGRAM
     Route: 048
     Dates: start: 20190218
  27. ENOXAPARIN SODIUM [Concomitant]
     Active Substance: ENOXAPARIN SODIUM
     Indication: Thrombosis prophylaxis
     Dosage: 40 MILLIGRAM, QD
     Route: 058
     Dates: start: 20190228, end: 20190307
  28. ASPIRIN [Concomitant]
     Active Substance: ASPIRIN
     Indication: Coronary artery disease
     Dosage: 100 MILLIGRAM
     Route: 048
  29. CALCIUM D3 STADA [Concomitant]
     Indication: Osteoporosis
     Dosage: UNK UNK, QD
     Route: 048
     Dates: start: 20131108
  30. IBUPROFEN [Concomitant]
     Active Substance: IBUPROFEN
     Indication: Pain
     Dosage: 1.80 MILLIGRAM, QD
     Route: 048
     Dates: start: 20190227, end: 20190228
  31. IBUPROFEN [Concomitant]
     Active Substance: IBUPROFEN
     Dosage: 1800 MILLIGRAM, QD
     Route: 048
     Dates: start: 20190227, end: 20190228
  32. METAMIZOL [Concomitant]
     Active Substance: METAMIZOLE SODIUM
     Indication: Pain
     Dosage: 4.80 MILLIGRAM, QD
     Route: 048
     Dates: start: 20190227, end: 20190228
  33. METAMIZOL [Concomitant]
     Active Substance: METAMIZOLE SODIUM
     Dosage: 4800 MILLIGRAM, QD
     Route: 042
     Dates: start: 20190227, end: 20190228
  34. Jonosteril [Concomitant]
     Indication: Fluid imbalance
     Dosage: UNK
     Route: 042
     Dates: start: 20190227, end: 20190228
  35. AMBROXOL [Concomitant]
     Active Substance: AMBROXOL
     Indication: Cough
     Dosage: 45 MILLIGRAM, QD
     Route: 048
     Dates: start: 20190227, end: 20190228
  36. AMBROXOL [Concomitant]
     Active Substance: AMBROXOL
     Dosage: 45 MILLIGRAM, QD
     Route: 042
     Dates: start: 20190227, end: 20190228
  37. ACETYLCYSTEIN ACTAVIS [Concomitant]
     Indication: Cough
     Dosage: 900 MILLIGRAM, QD
     Route: 042
     Dates: start: 20190227, end: 20190228
  38. ENOXAPARIN [Concomitant]
     Active Substance: ENOXAPARIN
     Indication: Thrombosis prophylaxis
     Dosage: 40 MILLIGRAM, QD
     Route: 058
     Dates: start: 20190227, end: 20190228
  39. PANTOPRAZOLE SODIUM [Concomitant]
     Active Substance: PANTOPRAZOLE SODIUM
     Indication: Gastrointestinal disorder prophylaxis
     Dosage: 40 MILLIGRAM, QD
     Route: 048
     Dates: start: 20190227, end: 20190228
  40. PANTOPRAZOLE SODIUM [Concomitant]
     Active Substance: PANTOPRAZOLE SODIUM
     Dosage: 20 MILLIGRAM, QD
     Route: 048
  41. BISOPROLOL [Concomitant]
     Active Substance: BISOPROLOL
     Indication: Cardiovascular disorder
     Dosage: 3 MILLIGRAM, QD
     Route: 048
     Dates: start: 20190227, end: 20190228
  42. BISOPROLOL [Concomitant]
     Active Substance: BISOPROLOL
     Dosage: 2.5 MILLIGRAM, QD
     Route: 048
     Dates: start: 20190227, end: 20190228
  43. POLYETHYLENE GLYCOLS [Concomitant]
     Active Substance: POLYETHYLENE GLYCOLS
     Indication: Laxative supportive care
     Dosage: UNK UNK, QD
     Route: 048
     Dates: start: 20190227, end: 20190228
  44. NALOXONE HYDROCHLORIDE\TILIDINE HYDROCHLORIDE [Concomitant]
     Active Substance: NALOXONE HYDROCHLORIDE\TILIDINE HYDROCHLORIDE
     Indication: Femoral neck fracture
     Dosage: 50 MILLIGRAM
     Route: 048
     Dates: start: 20190218

REACTIONS (4)
  - Femoral neck fracture [Recovered/Resolved]
  - Cough [Recovered/Resolved]
  - Hypertension [Recovered/Resolved]
  - Blood cholesterol increased [Recovered/Resolved]

NARRATIVE: CASE EVENT DATE: 20190221
